FAERS Safety Report 8895619 (Version 1)
Quarter: 2012Q4

REPORT INFORMATION
  Report Type: 
  Country: ZA (occurrence: ZA)
  Receive Date: 20121108
  Receipt Date: 20121108
  Transmission Date: 20130627
  Serious: Yes (Hospitalization)
  Sender: FDA-Public Use
  Company Number: ZA-BRISTOL-MYERS SQUIBB COMPANY-17084385

PATIENT

DRUGS (3)
  1. STREPTOMYCIN [Suspect]
  2. OFLOXACIN [Concomitant]
     Route: 048
  3. ETHIONAMIDE [Concomitant]

REACTIONS (1)
  - Hypersensitivity [Unknown]
